FAERS Safety Report 10780068 (Version 1)
Quarter: 2015Q1

REPORT INFORMATION
  Report Type: Spontaneous
  Country: IT (occurrence: IT)
  Receive Date: 20150210
  Receipt Date: 20150210
  Transmission Date: 20150721
  Serious: Yes (Hospitalization)
  Sender: FDA-Public Use
  Company Number: IT-TEVA-538539ISR

PATIENT
  Age: 72 Year
  Sex: Female

DRUGS (5)
  1. OLANZAPINE. [Concomitant]
     Active Substance: OLANZAPINE
     Indication: PRODUCT USED FOR UNKNOWN INDICATION
     Dosage: 2.5 MG
     Route: 048
  2. CLOZAPINE. [Concomitant]
     Active Substance: CLOZAPINE
     Indication: PRODUCT USED FOR UNKNOWN INDICATION
     Dosage: 12.5 MG
     Route: 048
  3. CARBOLITHIUM - 150 MG CAPSULE RIGIDE - TEVA ITALIA S.R.L . [Suspect]
     Active Substance: LITHIUM CARBONATE
     Dosage: 2 DOSAGE FORMS DAILY; 2 TABLETS OF CARBOLITHIUM AND 2 TABLETS OF DEPAKIN ON ALTERNATIVE DAYS
     Route: 048
     Dates: start: 20150106, end: 20150109
  4. DEPAKIN CHRONO - 300 MG COMPRESSE A RILASCIO PROLUNGATO [Concomitant]
     Active Substance: VALPROATE SODIUM
     Indication: PRODUCT USED FOR UNKNOWN INDICATION
     Dosage: 600 MG
     Route: 048
  5. CARBOLITHIUM - 150 MG CAPSULE RIGIDE - TEVA ITALIA S.R.L . [Suspect]
     Active Substance: LITHIUM CARBONATE
     Indication: MEDICATION ERROR
     Dosage: 450 MILLIGRAM DAILY;
     Route: 048
     Dates: start: 20150106, end: 20150109

REACTIONS (3)
  - Aphasia [Recovered/Resolved]
  - Medication error [Recovered/Resolved]
  - Tremor [Recovered/Resolved]

NARRATIVE: CASE EVENT DATE: 20150106
